FAERS Safety Report 8818660 (Version 1)
Quarter: 2012Q4

REPORT INFORMATION
  Report Type: 
  Country: GB (occurrence: GB)
  Receive Date: 20121001
  Receipt Date: 20121001
  Transmission Date: 20130627
  Serious: Yes (Hospitalization)
  Sender: FDA-Public Use
  Company Number: PHHY2012GB083073

PATIENT
  Age: 91 Year
  Sex: Female
  Weight: 50 kg

DRUGS (8)
  1. OMEPRAZOLE [Suspect]
     Dosage: 40 mg, daily
     Route: 048
     Dates: end: 20120910
  2. DALTEPARIN [Concomitant]
  3. FLUDROCORTISONE [Concomitant]
  4. FOLIC ACID [Concomitant]
  5. LOPERAMIDE [Concomitant]
  6. SANDO K [Concomitant]
  7. THIAMINE [Concomitant]
  8. VITAMIN B COMPLEX [Concomitant]

REACTIONS (3)
  - Fall [Unknown]
  - Atrial fibrillation [Unknown]
  - Hypomagnesaemia [Not Recovered/Not Resolved]
